FAERS Safety Report 9620194 (Version 1)
Quarter: 2013Q4

REPORT INFORMATION
  Report Type: Spontaneous
  Country: US (occurrence: US)
  Receive Date: 20131014
  Receipt Date: 20131014
  Transmission Date: 20140711
  Serious: No
  Sender: FDA-Public Use
  Company Number: US-TEVA-437583USA

PATIENT
  Sex: Female

DRUGS (2)
  1. NUVIGIL [Suspect]
  2. UNKNOWN ANTIBIOTIC [Suspect]

REACTIONS (1)
  - Overdose [Recovered/Resolved]
